FAERS Safety Report 10395702 (Version 2)
Quarter: 2014Q4

REPORT INFORMATION
  Report Type: Spontaneous
  Country: US (occurrence: US)
  Receive Date: 20140820
  Receipt Date: 20141014
  Transmission Date: 20150528
  Serious: Yes (Other)
  Sender: FDA-Public Use
  Company Number: US-LUNDBECK-DKLU1102730

PATIENT
  Age: 10 Month
  Sex: Female
  Weight: 10 kg

DRUGS (5)
  1. SABRIL [Suspect]
     Active Substance: VIGABATRIN
  2. SABRIL [Suspect]
     Active Substance: VIGABATRIN
     Indication: INFANTILE SPASMS
     Dates: start: 20140726
  3. SABRIL [Suspect]
     Active Substance: VIGABATRIN
  4. SABRIL [Suspect]
     Active Substance: VIGABATRIN
  5. SABRIL [Suspect]
     Active Substance: VIGABATRIN
     Dosage: 200 MG/KG/DAY
     Route: 048
     Dates: start: 20140823

REACTIONS (2)
  - Seizure [Not Recovered/Not Resolved]
  - Infantile spasms [Not Recovered/Not Resolved]

NARRATIVE: CASE EVENT DATE: 201408
